FAERS Safety Report 11568912 (Version 1)
Quarter: 2015Q3

REPORT INFORMATION
  Report Type: Spontaneous
  Country: JP (occurrence: JP)
  Receive Date: 20150929
  Receipt Date: 20150929
  Transmission Date: 20151125
  Serious: Yes (Other)
  Sender: FDA-Public Use
  Company Number: JP-JNJFOC-20150925375

PATIENT
  Sex: Male

DRUGS (1)
  1. ZYTIGA [Suspect]
     Active Substance: ABIRATERONE ACETATE
     Indication: PROSTATE CANCER
     Route: 048

REACTIONS (5)
  - Platelet count decreased [Recovered/Resolved]
  - Dizziness [Unknown]
  - Transient ischaemic attack [Unknown]
  - Hepatic enzyme abnormal [Unknown]
  - Malaise [Unknown]
